FAERS Safety Report 24662772 (Version 1)
Quarter: 2024Q4

REPORT INFORMATION
  Report Type: Spontaneous
  Country: US (occurrence: US)
  Receive Date: 20241126
  Receipt Date: 20241126
  Transmission Date: 20250115
  Serious: Yes (Other)
  Sender: AUROBINDO
  Company Number: US-MLMSERVICE-20241105-PI247438-00249-1

PATIENT
  Age: 64 Year
  Sex: Female

DRUGS (7)
  1. OXALIPLATIN [Suspect]
     Active Substance: OXALIPLATIN
     Indication: HER2 positive gastric cancer
     Dosage: 85 MILLIGRAM/SQ. METER (85 MG/M2 EVERY 2 WEEKS)
     Route: 065
  2. OXALIPLATIN [Suspect]
     Active Substance: OXALIPLATIN
     Indication: Oesophageal cancer metastatic
  3. FLUOROURACIL [Concomitant]
     Active Substance: FLUOROURACIL
     Indication: HER2 positive gastric cancer
     Dosage: 2400 MILLIGRAM/SQ. METER (2,400 MG/M2 EVERY 2 WEEKS)
     Route: 065
  4. FLUOROURACIL [Concomitant]
     Active Substance: FLUOROURACIL
     Indication: Oesophageal cancer metastatic
  5. TRASTUZUMAB [Concomitant]
     Active Substance: TRASTUZUMAB
     Indication: HER2 positive gastric cancer
     Dosage: 8 MILLIGRAM/KILOGRAM (8 MG/KG LOADING DOSE FOLLOWED BY 6 MG/KG EVERY 3 WEEKS)
     Route: 065
  6. TRASTUZUMAB [Concomitant]
     Active Substance: TRASTUZUMAB
     Dosage: 6 MILLIGRAM/KILOGRAM (8 MG/KG LOADING DOSE FOLLOWED BY 6 MG/KG EVERY 3 WEEKS)
     Route: 065
  7. PEMBROLIZUMAB [Concomitant]
     Active Substance: PEMBROLIZUMAB
     Indication: HER2 positive gastric cancer
     Dosage: 200 MILLIGRAM (200 MG EVERY 3 WEEKS)
     Route: 065

REACTIONS (2)
  - Neuropathy peripheral [Unknown]
  - Vogt-Koyanagi-Harada disease [Unknown]
